FAERS Safety Report 10752115 (Version 1)
Quarter: 2015Q1

REPORT INFORMATION
  Report Type: Spontaneous
  Country: IT (occurrence: None)
  Receive Date: 20150128
  Receipt Date: 20150128
  Transmission Date: 20150721
  Serious: Yes (Hospitalization, Other)
  Sender: FDA-Public Use
  Company Number: IT2015GSK007690

PATIENT
  Age: 60 Year
  Sex: Male

DRUGS (1)
  1. ZEFFIX (LAMIVUDINE) UNKNOWN [Suspect]
     Active Substance: LAMIVUDINE
     Indication: HEPATITIS B
     Route: 048
     Dates: start: 20130620, end: 20130717

REACTIONS (5)
  - Glycosuria [None]
  - Hypophosphataemia [None]
  - Proteinuria [None]
  - Fanconi syndrome acquired [None]
  - Acidosis [None]

NARRATIVE: CASE EVENT DATE: 20130712
